FAERS Safety Report 9420186 (Version 1)
Quarter: 2013Q3

REPORT INFORMATION
  Report Type: Spontaneous
  Country: CA (occurrence: None)
  Receive Date: 20130723
  Receipt Date: 20130723
  Transmission Date: 20140515
  Serious: Yes (Hospitalization)
  Sender: FDA-Public Use
  Company Number: None

PATIENT
  Age: 14 Year
  Sex: Male
  Weight: 62.4 kg

DRUGS (7)
  1. CYCLOPHOSPHAMIDE [Suspect]
     Dates: end: 20130710
  2. DOXORUBICIN HYDROCHLORIDE [Suspect]
     Dates: end: 20130709
  3. METHOTREXATE [Suspect]
     Dates: end: 20130709
  4. CYTARABINE [Suspect]
     Dates: end: 20130709
  5. HYDROCORTISONE [Suspect]
     Dates: end: 20130709
  6. PREDNISONE [Suspect]
     Dates: end: 20130715
  7. VINCRISTINE SULFATE [Suspect]
     Dates: end: 20130708

REACTIONS (4)
  - Oropharyngeal pain [None]
  - Hypophagia [None]
  - Mucosal inflammation [None]
  - Neutropenia [None]
